FAERS Safety Report 23417191 (Version 1)
Quarter: 2024Q1

REPORT INFORMATION
  Report Type: Spontaneous
  Country: US (occurrence: None)
  Receive Date: 20240117
  Receipt Date: 20240117
  Transmission Date: 20240410
  Serious: Yes (Hospitalization)
  Sender: FDA-Public Use
  Company Number: None

PATIENT

DRUGS (2)
  1. CLOZAPINE [Suspect]
     Active Substance: CLOZAPINE
  2. LORAZEPAM [Suspect]
     Active Substance: LORAZEPAM

REACTIONS (4)
  - Drug titration error [None]
  - Mood altered [None]
  - Agitation [None]
  - Impulsive behaviour [None]
